FAERS Safety Report 8814412 (Version 1)
Quarter: 2012Q4

REPORT INFORMATION
  Report Type: 
  Country: US (occurrence: US)
  Receive Date: 20120928
  Receipt Date: 20120928
  Transmission Date: 20130627
  Serious: Yes (Hospitalization, Other)
  Sender: FDA-Public Use
  Company Number: 2012SP002635

PATIENT
  Age: 45 Year
  Sex: Female
  Weight: 92 kg

DRUGS (16)
  1. XOPENEX [Suspect]
     Indication: CHRONIC OBSTRUCTIVE PULMONARY DISEASE
     Route: 055
  2. SEREVENT DISKUS [Suspect]
     Indication: CHRONIC OBSTRUCTIVE PULMONARY DISEASE
  3. DIAZEPAM [Concomitant]
     Indication: PAIN
     Dates: start: 2003
  4. EPINEPHRINE [Concomitant]
     Indication: PRODUCT USED FOR UNKNOWN INDICATION
     Route: 058
  5. FUROSEMIDE [Concomitant]
     Indication: DIURETIC THERAPY
     Dates: start: 2000
  6. LORATADINE [Concomitant]
     Indication: HYPERSENSITIVITY
  7. SIMVASTATIN [Concomitant]
     Indication: BLOOD CHOLESTEROL INCREASED
  8. METHOCARBAMOL [Concomitant]
     Indication: PAIN
  9. LEVETIRACETAM [Concomitant]
     Indication: CONVULSION
  10. LAMICTAL [Concomitant]
     Indication: CONVULSION
  11. DOXYCYCLINE [Concomitant]
     Indication: DERMAL CYST
  12. CLINDAMYCIN [Concomitant]
     Indication: DERMAL CYST
  13. PATANOL [Concomitant]
     Indication: HYPERSENSITIVITY
  14. ACULAR [Concomitant]
     Indication: HYPERSENSITIVITY
  15. LYRICA [Concomitant]
     Indication: FIBROMYALGIA
     Route: 048
     Dates: start: 2010
  16. ATROVENT [Concomitant]
     Indication: CHRONIC OBSTRUCTIVE PULMONARY DISEASE

REACTIONS (6)
  - Pulmonary oedema [Recovered/Resolved]
  - Loss of consciousness [Recovered/Resolved]
  - Drug ineffective [None]
  - Low density lipoprotein increased [Not Recovered/Not Resolved]
  - High density lipoprotein decreased [Not Recovered/Not Resolved]
  - Drug dose omission [None]
